FAERS Safety Report 24177020 (Version 2)
Quarter: 2024Q4

REPORT INFORMATION
  Report Type: Spontaneous
  Country: UA (occurrence: UA)
  Receive Date: 20240806
  Receipt Date: 20241010
  Transmission Date: 20250114
  Serious: Yes (Other)
  Sender: DR REDDYS
  Company Number: UA-GERMAN-SPO/UKR/24/0011094

PATIENT
  Sex: Female

DRUGS (1)
  1. CIPROFLOXACIN [Suspect]
     Active Substance: CIPROFLOXACIN
     Indication: Product used for unknown indication

REACTIONS (9)
  - Panic reaction [Unknown]
  - Somnolence [Unknown]
  - Feeling cold [Unknown]
  - Musculoskeletal stiffness [Unknown]
  - Muscle tightness [Unknown]
  - Swelling [Unknown]
  - Tinnitus [Unknown]
  - Vertigo [Unknown]
  - Feeling of body temperature change [Unknown]
